FAERS Safety Report 7403108-1 (Version None)
Quarter: 2011Q2

REPORT INFORMATION
  Report Type: 
  Country: None (occurrence: None)
  Receive Date: 20110408
  Receipt Date: 20110406
  Transmission Date: 20111010
  Serious: Yes (Hospitalization)
  Sender: FDA-Public Use
  Company Number: US-AMGEN-USASP2011018288

PATIENT
  Sex: Female

DRUGS (4)
  1. IVIGLOB-EX [Concomitant]
  2. PROMACTA [Concomitant]
  3. CORTICOSTEROIDS [Concomitant]
  4. NPLATE [Suspect]
     Indication: IDIOPATHIC THROMBOCYTOPENIC PURPURA
     Dates: start: 20101111

REACTIONS (1)
  - CARDIAC FAILURE CONGESTIVE [None]
